FAERS Safety Report 5491566-1 (Version None)
Quarter: 2007Q4

REPORT INFORMATION
  Report Type: 
  Country: None (occurrence: None)
  Receive Date: 20071018
  Receipt Date: 20071018
  Transmission Date: 20080405
  Serious: Yes (Hospitalization)
  Sender: FDA-Public Use
  Company Number: None

PATIENT
  Age: 50 Year
  Sex: Female
  Weight: 100 kg

DRUGS (3)
  1. FLUCONAZOLE [Suspect]
     Indication: FUNGAL INFECTION
     Dosage: 150 MG PO X 1
     Route: 048
     Dates: start: 20070907
  2. NIFEDIPINE [Concomitant]
  3. NYSTATIN CR [Concomitant]

REACTIONS (1)
  - DRUG HYPERSENSITIVITY [None]
